FAERS Safety Report 17406851 (Version 1)
Quarter: 2020Q1

REPORT INFORMATION
  Report Type: Other
  Country: RO (occurrence: RO)
  Receive Date: 20200212
  Receipt Date: 20200212
  Transmission Date: 20200409
  Serious: Yes (Other)
  Sender: FDA-Public Use
  Company Number: RO-CELLTRION INC.-2020RO018556

PATIENT

DRUGS (2)
  1. TRASTUZUMAB (UNKNOWN) [Suspect]
     Active Substance: TRASTUZUMAB
     Dosage: 600 MILLIGRAM
     Route: 065
     Dates: start: 20190601
  2. TRASTUZUMAB (UNKNOWN) [Suspect]
     Active Substance: TRASTUZUMAB
     Indication: BREAST CANCER
     Dosage: 600 MILLIGRAM
     Route: 065
     Dates: start: 20190601

REACTIONS (6)
  - Hypertension [Unknown]
  - Loss of consciousness [Unknown]
  - Insomnia [Unknown]
  - Asthenia [Unknown]
  - Laboratory test abnormal [Unknown]
  - Malaise [Unknown]
